FAERS Safety Report 6499834-1 (Version None)
Quarter: 2009Q4

REPORT INFORMATION
  Report Type: 
  Country: None (occurrence: None)
  Receive Date: 20091214
  Receipt Date: 20091201
  Transmission Date: 20100525
  Serious: Yes (Hospitalization, Other)
  Sender: FDA-Public Use
  Company Number: TPA2009A03983

PATIENT
  Age: 73 Year
  Sex: Male
  Weight: 149.6 kg

DRUGS (3)
  1. ULORIC [Suspect]
     Indication: GOUT
     Dosage: 80 MG
  2. REMICADE [Suspect]
     Indication: RHEUMATOID ARTHRITIS
     Dosage: 600 MG, 1 IN 8 WK, INTRAVENOUS
     Route: 042
  3. FLU VACCINE (INFLUENZA VACCINE) [Concomitant]

REACTIONS (5)
  - BLOOD PRESSURE DECREASED [None]
  - BLOOD PRESSURE IMMEASURABLE [None]
  - DYSPNOEA [None]
  - LOSS OF CONSCIOUSNESS [None]
  - NO THERAPEUTIC RESPONSE [None]
